FAERS Safety Report 11068087 (Version 1)
Quarter: 2015Q2

REPORT INFORMATION
  Report Type: Spontaneous
  Country: SE (occurrence: SE)
  Receive Date: 20150427
  Receipt Date: 20150427
  Transmission Date: 20150821
  Serious: Yes (Life-Threatening)
  Sender: FDA-Public Use
  Company Number: SE-TEVA-556778ISR

PATIENT
  Age: 72 Year
  Sex: Male

DRUGS (2)
  1. FELODIPINE ORAL [Suspect]
     Active Substance: FELODIPINE
     Route: 048
  2. ATENOLOL ORAL [Suspect]
     Active Substance: ATENOLOL
     Route: 048

REACTIONS (6)
  - Fatigue [Recovered/Resolved]
  - Bradycardia [Recovered/Resolved]
  - Suicide attempt [Recovered/Resolved]
  - Vomiting [Recovered/Resolved]
  - Toxicity to various agents [Recovered/Resolved]
  - Cardiac arrest [Recovered/Resolved]
